FAERS Safety Report 18036144 (Version 1)
Quarter: 2020Q3

REPORT INFORMATION
  Report Type: Spontaneous
  Country: US (occurrence: US)
  Receive Date: 20200716
  Receipt Date: 20200716
  Transmission Date: 20201103
  Serious: Yes (Hospitalization)
  Sender: FDA-Public Use
  Company Number: None

PATIENT
  Age: 89 Year
  Sex: Male
  Weight: 71.67 kg

DRUGS (1)
  1. GABAPENTIN (GABAPENTIN 300MG CAP,UD) [Suspect]
     Active Substance: GABAPENTIN
     Indication: PAIN

REACTIONS (3)
  - Confusional state [None]
  - Dizziness [None]
  - Mental status changes [None]

NARRATIVE: CASE EVENT DATE: 20191022
